FAERS Safety Report 15222840 (Version 6)
Quarter: 2019Q4

REPORT INFORMATION
  Report Type: Spontaneous
  Country: PT (occurrence: PT)
  Receive Date: 20180731
  Receipt Date: 20191226
  Transmission Date: 20200122
  Serious: Yes (Life-Threatening, Hospitalization, Other)
  Sender: FDA-Public Use
  Company Number: PT-JNJFOC-20180729490

PATIENT
  Age: 48 Year
  Sex: Female
  Weight: 77 kg

DRUGS (12)
  1. TOPIRAMATE. [Suspect]
     Active Substance: TOPIRAMATE
     Indication: WEIGHT DECREASED
     Route: 048
     Dates: start: 201708, end: 201804
  2. METFORMIN [Interacting]
     Active Substance: METFORMIN HYDROCHLORIDE
     Indication: WEIGHT DECREASED
     Route: 048
     Dates: start: 201708, end: 201804
  3. CHLORDIAZEPOXIDE. [Interacting]
     Active Substance: CHLORDIAZEPOXIDE
     Route: 048
     Dates: start: 201708, end: 201804
  4. MINULET [Interacting]
     Active Substance: ETHINYL ESTRADIOL\GESTODENE
     Indication: CONTRACEPTION
     Dosage: 1 UG/L
     Route: 048
     Dates: start: 201711, end: 201804
  5. FLECAINIDE [Concomitant]
     Active Substance: FLECAINIDE
     Indication: VENTRICULAR EXTRASYSTOLES
     Route: 048
     Dates: start: 201605
  6. FUROSEMIDE. [Interacting]
     Active Substance: FUROSEMIDE
     Indication: WEIGHT DECREASED
     Route: 048
     Dates: start: 201708, end: 201804
  7. CHLORDIAZEPOXIDE. [Interacting]
     Active Substance: CHLORDIAZEPOXIDE
     Indication: WEIGHT DECREASED
     Route: 048
     Dates: start: 201708, end: 201804
  8. CENTELLA ASIATICA [Interacting]
     Active Substance: CENTELLA ASIATICA WHOLE
     Indication: WEIGHT DECREASED
     Route: 048
     Dates: start: 201708, end: 201804
  9. BUPROPION. [Interacting]
     Active Substance: BUPROPION
     Indication: WEIGHT DECREASED
     Route: 048
     Dates: start: 201708, end: 201804
  10. PHENOLPHTHALEIN [Interacting]
     Active Substance: PHENOLPHTHALEIN
     Indication: WEIGHT DECREASED
     Route: 048
     Dates: start: 201708, end: 201804
  11. CHROMIUM PICOLINATE [Interacting]
     Active Substance: CHROMIUM PICOLINATE
     Indication: WEIGHT DECREASED
     Route: 048
     Dates: start: 201708, end: 201804
  12. ORLISTAT. [Interacting]
     Active Substance: ORLISTAT
     Indication: WEIGHT DECREASED
     Route: 048
     Dates: start: 201708, end: 201804

REACTIONS (9)
  - Thalamic infarction [Not Recovered/Not Resolved]
  - Drug interaction [Unknown]
  - Fatigue [Recovering/Resolving]
  - Cerebral venous thrombosis [Recovering/Resolving]
  - Psychomotor retardation [Recovering/Resolving]
  - Product use in unapproved indication [Unknown]
  - Bradyphrenia [Recovering/Resolving]
  - Headache [Recovering/Resolving]
  - Off label use [Unknown]

NARRATIVE: CASE EVENT DATE: 201708
